FAERS Safety Report 12717939 (Version 1)
Quarter: 2016Q3

REPORT INFORMATION
  Report Type: Spontaneous
  Country: IT (occurrence: IT)
  Receive Date: 20160906
  Receipt Date: 20160906
  Transmission Date: 20161109
  Serious: Yes (Other)
  Sender: FDA-Public Use
  Company Number: IT-PFIZER INC-2016405648

PATIENT
  Age: 57 Year
  Sex: Male

DRUGS (4)
  1. VINCRISTINE SULFATE. [Suspect]
     Active Substance: VINCRISTINE SULFATE
     Indication: LYMPHOMA
     Dosage: 2 MG, DAILY (5 CYCLES)
  2. DELTACORTENE [Concomitant]
     Active Substance: PREDNISONE
     Indication: ABDOMINAL LYMPHADENOPATHY
     Dosage: 100 MG, DAILY (5 CYCLES)
  3. VINCRISTINE SULFATE. [Suspect]
     Active Substance: VINCRISTINE SULFATE
     Dosage: 0.012 MG, DAILY (5 CYCLES)
  4. BLEOMYCIN [Concomitant]
     Active Substance: BLEOMYCIN SULFATE
     Indication: ABDOMINAL LYMPHADENOPATHY
     Dosage: 100 MG, DAILY (5 CYCLES)

REACTIONS (2)
  - Polyneuropathy [Unknown]
  - Osteonecrosis [Unknown]
